FAERS Safety Report 5523736-8 (Version None)
Quarter: 2007Q4

REPORT INFORMATION
  Report Type: 
  Country: None (occurrence: None)
  Receive Date: 20071121
  Receipt Date: 20071120
  Transmission Date: 20080405
  Serious: Yes (Hospitalization)
  Sender: FDA-Public Use
  Company Number: FR-WYE-G00643207

PATIENT
  Sex: Male

DRUGS (20)
  1. TAZOCILLINE [Suspect]
     Indication: OSTEITIS
     Route: 042
     Dates: start: 20070620, end: 20071006
  2. TAZOCILLINE [Suspect]
     Indication: ESCHAR
  3. TAZOCILLINE [Suspect]
     Indication: PATHOGEN RESISTANCE
  4. RIFADIN [Suspect]
     Indication: OSTEITIS
     Dosage: 900 MG TOTAL DAILY
     Route: 048
     Dates: start: 20070628, end: 20071006
  5. RIFADIN [Suspect]
     Indication: ESCHAR
  6. RIFADIN [Suspect]
     Indication: PATHOGEN RESISTANCE
  7. LYRICA [Concomitant]
     Dosage: UNKNOWN
  8. FUMAFER [Concomitant]
     Dosage: UNKNOWN
  9. SINTROM [Concomitant]
     Dosage: UNKNOWN
  10. LANSOYL [Concomitant]
     Dosage: UNKNOWN
  11. SEROPLEX [Concomitant]
     Dosage: UNKNOWN
  12. LANSOPRAZOLE [Concomitant]
     Dosage: UNKNOWN
  13. LAROXYL [Concomitant]
     Dosage: UNKNOWN
  14. TERCIAN [Concomitant]
     Dosage: UNKNOWN
  15. RIVOTRIL [Concomitant]
     Dosage: UNKNOWN
  16. RISPERDAL [Concomitant]
     Dosage: UNKNOWN
  17. BACTRIM FORTE [Suspect]
     Indication: OSTEITIS
     Dosage: 3 DOSES TOTAL DAILY
     Route: 048
     Dates: start: 20070628, end: 20071006
  18. BACTRIM FORTE [Suspect]
     Indication: ESCHAR
  19. BACTRIM FORTE [Suspect]
     Indication: PATHOGEN RESISTANCE
  20. TRAMADOL HCL [Concomitant]
     Dosage: UNKNOWN

REACTIONS (1)
  - CYTOLYTIC HEPATITIS [None]
